FAERS Safety Report 9322309 (Version 1)
Quarter: 2013Q2

REPORT INFORMATION
  Report Type: Spontaneous
  Country: US (occurrence: US)
  Receive Date: 20130531
  Receipt Date: 20130531
  Transmission Date: 20140414
  Serious: Yes (Life-Threatening, Hospitalization, Disabling, Other)
  Sender: FDA-Public Use
  Company Number: US-GLAXOSMITHKLINE-A1024542A

PATIENT
  Age: 75 Year
  Sex: Male

DRUGS (10)
  1. ARZERRA [Suspect]
     Indication: CHRONIC LYMPHOCYTIC LEUKAEMIA
     Dosage: 2000MG CYCLIC
     Route: 042
     Dates: start: 20130508, end: 20130523
  2. LIPITOR [Concomitant]
  3. SYNTHROID [Concomitant]
  4. ZESTRIL [Concomitant]
  5. B12 INJECTION [Concomitant]
  6. B6 [Concomitant]
  7. FOLIC ACID [Concomitant]
  8. DAPSONE [Concomitant]
  9. FLUCONAZOLE [Concomitant]
  10. ACYCLOVIR [Concomitant]

REACTIONS (12)
  - Pneumonia [Not Recovered/Not Resolved]
  - Platelet transfusion [Unknown]
  - Transfusion [Unknown]
  - Thrombocytopenia [Unknown]
  - Infection [Unknown]
  - White blood cell count abnormal [Unknown]
  - Anaemia [Unknown]
  - White blood cell count increased [Unknown]
  - Fatigue [Unknown]
  - Dyspnoea [Unknown]
  - Red blood cell count abnormal [Unknown]
  - Haemoglobin abnormal [Unknown]
